FAERS Safety Report 18753421 (Version 1)
Quarter: 2021Q1

REPORT INFORMATION
  Report Type: Spontaneous
  Country: US (occurrence: US)
  Receive Date: 20210118
  Receipt Date: 20210118
  Transmission Date: 20210419
  Serious: No
  Sender: FDA-Public Use
  Company Number: US-JUBILANT CADISTA PHARMACEUTICALS-2020JUB00081

PATIENT
  Age: 70 Year
  Sex: Male
  Weight: 79.37 kg

DRUGS (2)
  1. TERAZOSIN [Suspect]
     Active Substance: TERAZOSIN HYDROCHLORIDE
     Indication: BENIGN PROSTATIC HYPERPLASIA
     Dosage: 5 MG, IN THE EVENING
     Route: 048
     Dates: start: 20200228
  2. TERAZOSIN [Suspect]
     Active Substance: TERAZOSIN HYDROCHLORIDE
     Dosage: 5 MG IN THE EVENING ^FOR YEARS^
     Route: 048

REACTIONS (2)
  - Pollakiuria [Not Recovered/Not Resolved]
  - Therapeutic product effect decreased [Not Recovered/Not Resolved]

NARRATIVE: CASE EVENT DATE: 2020
